FAERS Safety Report 7776071-1 (Version None)
Quarter: 2011Q3

REPORT INFORMATION
  Report Type: 
  Country: None (occurrence: None)
  Receive Date: 20110925
  Receipt Date: 20110810
  Transmission Date: 20111222
  Serious: Yes (Hospitalization)
  Sender: FDA-Public Use
  Company Number: GB-AMGEN-GBRCT2011049217

PATIENT
  Age: 52 Year
  Sex: Male

DRUGS (3)
  1. BLINDED DENOSUMAB [Suspect]
     Indication: BREAST CANCER
     Dates: start: 20110802
  2. BLINDED PLACEBO [Suspect]
     Indication: BREAST CANCER
     Dates: start: 20110802
  3. NEUPOGEN [Concomitant]
     Dosage: UNK UNK, QD
     Route: 058
     Dates: start: 20110803

REACTIONS (1)
  - PYREXIA [None]
